FAERS Safety Report 16507728 (Version 2)
Quarter: 2019Q3

REPORT INFORMATION
  Report Type: Spontaneous
  Country: JP (occurrence: JP)
  Receive Date: 20190702
  Receipt Date: 20190722
  Transmission Date: 20191004
  Serious: Yes (Other)
  Sender: FDA-Public Use
  Company Number: JP-TEVA-2019-JP-003808J

PATIENT
  Age: 8 Year
  Sex: Male
  Weight: 33 kg

DRUGS (18)
  1. BAKTAR [Concomitant]
     Active Substance: SULFAMETHOXAZOLE\TRIMETHOPRIM
     Dosage: DOSAGE IS UNKNOWN
     Route: 065
     Dates: start: 20181122
  2. PREDNISOLONE TABLETS 5MG [Suspect]
     Active Substance: PREDNISOLONE
     Indication: UVEITIS
     Dosage: 40 MILLIGRAM DAILY;
     Route: 048
     Dates: start: 20180920, end: 20181218
  3. METOLATE [Concomitant]
     Active Substance: METHOTREXATE
     Dosage: DOSAGE IS UNKNOWN
     Route: 065
     Dates: start: 20180916
  4. MAGNESIUM OXIDE. [Concomitant]
     Active Substance: MAGNESIUM OXIDE
     Dosage: DOSAGE IS UNKNOWN
     Route: 065
     Dates: start: 20190101
  5. LIPIDIL [Concomitant]
     Active Substance: FENOFIBRATE
     Dosage: DOSAGE IS UNKNOWN
     Route: 065
     Dates: start: 20190319
  6. PREDNISOLONE TABLETS 5MG [Suspect]
     Active Substance: PREDNISOLONE
     Dosage: 10 MILLIGRAM DAILY;
     Route: 048
  7. BONALON JELLY [Concomitant]
     Dosage: DOSAGE IS UNKNOWN
     Route: 048
     Dates: start: 20190203
  8. PREDNISOLONE TABLETS 5MG [Suspect]
     Active Substance: PREDNISOLONE
     Dosage: 34 MILLIGRAM DAILY;
     Route: 048
     Dates: start: 20181219
  9. NEORAL [Concomitant]
     Active Substance: CYCLOSPORINE
     Dosage: DOSAGE IS UNKNOWN
     Route: 065
     Dates: start: 20180920, end: 20190121
  10. HUMIRA [Concomitant]
     Active Substance: ADALIMUMAB
     Dosage: DOSAGE IS UNKNOWN
     Route: 065
     Dates: start: 20181020
  11. PREDNISOLONE TABLETS 5MG [Suspect]
     Active Substance: PREDNISOLONE
     Dosage: 28 MILLIGRAM DAILY;
     Route: 048
  12. PREDNISOLONE TABLETS 5MG [Suspect]
     Active Substance: PREDNISOLONE
     Dosage: 16 MILLIGRAM DAILY;
     Route: 048
  13. FAMOTIDINE. [Concomitant]
     Active Substance: FAMOTIDINE
     Dosage: DOSAGE IS UNKNOWN
     Route: 065
     Dates: start: 20180920
  14. FOLIAMIN [Concomitant]
     Active Substance: FOLIC ACID
     Dosage: DOSAGE IS UNKNOWN
     Route: 065
     Dates: start: 20180916
  15. AMLODIPINE BESILATE [Concomitant]
     Active Substance: AMLODIPINE BESYLATE
     Dosage: DOSAGE IS UNKNOWN
     Route: 065
     Dates: start: 20190201
  16. PREDNISOLONE TABLETS 5MG [Suspect]
     Active Substance: PREDNISOLONE
     Dosage: 8 MILLIGRAM DAILY;
     Route: 048
  17. IMURAN [Concomitant]
     Active Substance: AZATHIOPRINE
     Dosage: DOSAGE IS UNKNOWN
     Route: 065
     Dates: start: 20190409
  18. PREDNISOLONE TABLETS 5MG [Suspect]
     Active Substance: PREDNISOLONE
     Dosage: 22 MILLIGRAM DAILY;
     Route: 048

REACTIONS (3)
  - Growth disorder [Not Recovered/Not Resolved]
  - Weight increased [Not Recovered/Not Resolved]
  - Retinal detachment [Not Recovered/Not Resolved]

NARRATIVE: CASE EVENT DATE: 20180920
